FAERS Safety Report 5352270-3 (Version None)
Quarter: 2007Q2

REPORT INFORMATION
  Report Type: 
  Country: None (occurrence: None)
  Receive Date: 20070611
  Receipt Date: 20070529
  Transmission Date: 20071010
  Serious: Yes (Other)
  Sender: FDA-Public Use
  Company Number: GR-AVENTIS-200714830GDDC

PATIENT
  Sex: Female

DRUGS (2)
  1. FLAGYL [Suspect]
     Dosage: DOSE: UNK
     Dates: start: 20070321, end: 20070325
  2. EPOGEN [Concomitant]
     Dosage: DOSE: UNK

REACTIONS (1)
  - SYNCOPE [None]
